FAERS Safety Report 21412360 (Version 2)
Quarter: 2023Q1

REPORT INFORMATION
  Report Type: Spontaneous
  Country: US (occurrence: US)
  Receive Date: 20221005
  Receipt Date: 20230116
  Transmission Date: 20230418
  Serious: No
  Sender: FDA-Public Use
  Company Number: US-INTRA-CELLULAR THERAPIES, INC.-2022ICT01236

PATIENT
  Age: 30 Year
  Sex: Female

DRUGS (7)
  1. CAPLYTA [Suspect]
     Active Substance: LUMATEPERONE
     Indication: Bipolar disorder
     Dosage: 42 MG, 1X/DAY AT BEDTIME
     Route: 048
     Dates: start: 202209, end: 2022
  2. CAPLYTA [Suspect]
     Active Substance: LUMATEPERONE
     Indication: Bipolar I disorder
     Dosage: 21 MG, 1X/DAY
     Route: 048
     Dates: start: 2022
  3. CAPLYTA [Suspect]
     Active Substance: LUMATEPERONE
     Indication: Psychotic disorder
  4. UNSPECIFIED DIETARY SUPPLEMENTS [Concomitant]
  5. OXYCONTIN [Concomitant]
     Active Substance: OXYCODONE HYDROCHLORIDE
     Dosage: 4 MG, 4X/DAY
  6. PANTOPRAZOLE [Concomitant]
     Active Substance: PANTOPRAZOLE
  7. UNSPECIFIED STOOL SOFTENER [Concomitant]

REACTIONS (2)
  - Hypersomnia [Unknown]
  - Performance status decreased [Unknown]

NARRATIVE: CASE EVENT DATE: 20220101
